FAERS Safety Report 18260991 (Version 2)
Quarter: 2020Q3

REPORT INFORMATION
  Report Type: Spontaneous
  Country: BR (occurrence: BR)
  Receive Date: 20200914
  Receipt Date: 20200928
  Transmission Date: 20201103
  Serious: Yes (Hospitalization)
  Sender: FDA-Public Use
  Company Number: BR-SA-2020SA246982

PATIENT

DRUGS (5)
  1. OMEPRAZOLE. [Concomitant]
     Active Substance: OMEPRAZOLE
     Dosage: 40 MG, QD
     Route: 042
  2. CEFAZOLIN [Concomitant]
     Active Substance: CEFAZOLIN
     Dosage: 1 G, Q8H
  3. METAMIZOLE [Concomitant]
     Active Substance: METAMIZOLE
     Dosage: 1 G, Q6H
  4. THYMOGLOBULINE [Suspect]
     Active Substance: LAPINE T-LYMPHOCYTE IMMUNE GLOBULIN
     Indication: IMMUNOSUPPRESSION
     Dosage: 150 MG, QD (10 HOUR INFUSION)
     Dates: start: 20200905, end: 20200906
  5. HYDROCORTISONE. [Concomitant]
     Active Substance: HYDROCORTISONE
     Dosage: 300 MG, QD

REACTIONS (2)
  - Hypotension [Recovered/Resolved]
  - Haematology test abnormal [Recovered/Resolved]

NARRATIVE: CASE EVENT DATE: 20200906
